FAERS Safety Report 16329397 (Version 1)
Quarter: 2019Q2

REPORT INFORMATION
  Report Type: Report from Study
  Country: DE (occurrence: DE)
  Receive Date: 20190520
  Receipt Date: 20190520
  Transmission Date: 20190711
  Serious: Yes (Other)
  Sender: FDA-Public Use
  Company Number: DE-ROCHE-2315210

PATIENT
  Age: 63 Year
  Sex: Female
  Weight: 51 kg

DRUGS (7)
  1. RUTA GRAVEOLENS [Concomitant]
     Active Substance: HOMEOPATHICS
     Route: 065
     Dates: start: 20140108
  2. GLAUPAX [Concomitant]
     Active Substance: ACETAZOLAMIDE
     Route: 048
     Dates: start: 20140519
  3. BLINDED COBIMETINIB [Suspect]
     Active Substance: COBIMETINIB
     Indication: MALIGNANT MELANOMA
     Dosage: ON 23/APR/2014, SHE RECEIVED THE MOST RECENT DOSE OF COBIMETINIB PRIOR TO SAE
     Route: 048
     Dates: start: 20131230
  4. GLAUPAX [Concomitant]
     Active Substance: ACETAZOLAMIDE
     Route: 048
     Dates: start: 20140502, end: 20140517
  5. SODIUM SELENITE PENTAHYDRATE [Concomitant]
     Indication: NUTRITIONAL SUPPLEMENTATION
     Route: 048
     Dates: start: 20140110
  6. VEMURAFENIB. [Suspect]
     Active Substance: VEMURAFENIB
     Indication: MALIGNANT MELANOMA
     Dosage: ON 23/APR/2014, SHE RECEIVED THE MOST RECENT DOSE OF VEMURAFENIB PRIOR TO SAE
     Route: 048
     Dates: start: 20131230
  7. DEKRISTOL [Concomitant]
     Active Substance: CHOLECALCIFEROL
     Indication: OSTEOPOROSIS
     Route: 048
     Dates: start: 20140113

REACTIONS (1)
  - Retinal detachment [Not Recovered/Not Resolved]

NARRATIVE: CASE EVENT DATE: 20140423
